FAERS Safety Report 9781649 (Version 1)
Quarter: 2013Q4

REPORT INFORMATION
  Report Type: Report from Study
  Country: JP (occurrence: JP)
  Receive Date: 20131224
  Receipt Date: 20131224
  Transmission Date: 20140711
  Serious: Yes (Other)
  Sender: FDA-Public Use
  Company Number: JP-TAKEDA-2013TJP004047

PATIENT
  Age: 91 Year
  Sex: Female
  Weight: 40 kg

DRUGS (5)
  1. ALOGLIPTIN [Suspect]
     Indication: TYPE 2 DIABETES MELLITUS
     Dosage: 6.25 MG, QD
     Route: 048
     Dates: start: 20121107
  2. ACTOS [Concomitant]
     Indication: TYPE 2 DIABETES MELLITUS
     Dosage: 15 MG, 1 DAYS
     Route: 048
  3. BLOPRESS [Concomitant]
     Dosage: UNK
     Route: 048
  4. WARFARIN [Concomitant]
     Dosage: UNK
     Route: 048
  5. HALFDIGOXIN [Concomitant]
     Dosage: UNK
     Route: 048

REACTIONS (1)
  - Cardiac failure [Recovered/Resolved]
